FAERS Safety Report 8141042-2 (Version None)
Quarter: 2012Q1

REPORT INFORMATION
  Report Type: 
  Country: None (occurrence: None)
  Receive Date: 20120103
  Receipt Date: 20111012
  Transmission Date: 20120608
  Serious: No
  Sender: FDA-Public Use
  Company Number: AE-2011-002274

PATIENT
  Age: 60 Year
  Sex: Female
  Weight: 111.1313 kg

DRUGS (9)
  1. LABETALOL HCL [Concomitant]
  2. URSODIOL [Concomitant]
  3. RIBASPHERE [Concomitant]
  4. FUROSEMIDE [Concomitant]
  5. ATACAND [Concomitant]
  6. INCIVEK [Suspect]
     Dosage: 2250 MG (750 MG,1 IN 8 HR),ORAL
     Route: 048
     Dates: start: 20111007
  7. PEGASYS [Concomitant]
  8. SPIRONOLACTONE [Concomitant]
  9. LAMICTAL [Concomitant]

REACTIONS (1)
  - EPISTAXIS [None]
